FAERS Safety Report 20362759 (Version 1)
Quarter: 2022Q1

REPORT INFORMATION
  Report Type: Report from Study
  Country: NL (occurrence: NL)
  Receive Date: 20220121
  Receipt Date: 20220121
  Transmission Date: 20220424
  Serious: Yes (Hospitalization)
  Sender: FDA-Public Use
  Company Number: NL-AstraZeneca-2022A028104

PATIENT
  Sex: Female
  Weight: 11.5 kg

DRUGS (1)
  1. SYNAGIS [Suspect]
     Active Substance: PALIVIZUMAB
     Indication: Heart disease congenital
     Route: 030
     Dates: start: 20201016

REACTIONS (1)
  - Oxygen saturation decreased [Recovered/Resolved]
